FAERS Safety Report 4609978-4 (Version None)
Quarter: 2005Q1

REPORT INFORMATION
  Report Type: 
  Country: None (occurrence: None)
  Receive Date: 20050316
  Receipt Date: 20050314
  Transmission Date: 20050727
  Serious: Yes (Other)
  Sender: FDA-Public Use
  Company Number: PHBS2005BR03634

PATIENT
  Age: 24 Year
  Sex: Female

DRUGS (3)
  1. EFFEXOR [Suspect]
     Dosage: 300 MG/D
     Route: 065
  2. DIANE [Suspect]
  3. TRILEPTAL [Suspect]
     Indication: BIPOLAR I DISORDER
     Dosage: 300 MG, TID
     Route: 048

REACTIONS (1)
  - BLINDNESS [None]
